FAERS Safety Report 9753610 (Version 1)
Quarter: 2013Q4

REPORT INFORMATION
  Report Type: Report from Study
  Country: CA (occurrence: CA)
  Receive Date: 20131213
  Receipt Date: 20131213
  Transmission Date: 20140711
  Serious: Yes (Hospitalization, Other)
  Sender: FDA-Public Use
  Company Number: PHHY2013CA146147

PATIENT
  Sex: Female

DRUGS (1)
  1. CLOZARIL [Suspect]
     Dosage: UNK UKN, UNK
     Dates: start: 20130821

REACTIONS (5)
  - Local swelling [Unknown]
  - Rash [Unknown]
  - Pyrexia [Unknown]
  - Autosomal chromosome anomaly [Unknown]
  - Cystitis [Unknown]
